FAERS Safety Report 6845977-X (Version None)
Quarter: 2010Q3

REPORT INFORMATION
  Report Type: 
  Country: None (occurrence: None)
  Receive Date: 20100715
  Receipt Date: 20070827
  Transmission Date: 20110219
  Serious: No
  Sender: FDA-Public Use
  Company Number: US-PFIZER INC-2007073149

PATIENT
  Sex: Female
  Weight: 68.181 kg

DRUGS (5)
  1. CHANTIX [Suspect]
     Indication: SMOKING CESSATION THERAPY
     Dates: start: 20070507, end: 20070701
  2. LIPITOR [Suspect]
     Indication: BLOOD CHOLESTEROL
     Dates: start: 20070701
  3. ACETYLSALICYLIC ACID [Concomitant]
  4. PREMPRO [Concomitant]
  5. ATENOLOL [Concomitant]

REACTIONS (4)
  - BACK PAIN [None]
  - FLATULENCE [None]
  - MYALGIA [None]
  - WEIGHT INCREASED [None]
